FAERS Safety Report 7415623-5 (Version None)
Quarter: 2011Q2

REPORT INFORMATION
  Report Type: 
  Country: None (occurrence: None)
  Receive Date: 20110414
  Receipt Date: 20110413
  Transmission Date: 20111010
  Serious: No
  Sender: FDA-Public Use
  Company Number: US-JNJFOC-20110301097

PATIENT
  Sex: Male
  Weight: 68.04 kg

DRUGS (2)
  1. FENTANYL-100 [Suspect]
     Indication: CANCER PAIN
     Route: 062
  2. UNKNOWN MEDICATION [Concomitant]
     Indication: NEOPLASM MALIGNANT
     Route: 030

REACTIONS (5)
  - INCORRECT DRUG ADMINISTRATION DURATION [None]
  - PAIN [None]
  - DRUG EFFECT INCREASED [None]
  - INAPPROPRIATE SCHEDULE OF DRUG ADMINISTRATION [None]
  - DRUG EFFECT DECREASED [None]
